FAERS Safety Report 9506588 (Version 2)
Quarter: 2014Q2

REPORT INFORMATION
  Report Type: Spontaneous
  Country: US (occurrence: US)
  Receive Date: 20130907
  Receipt Date: 20140424
  Transmission Date: 20141212
  Serious: Yes (Hospitalization)
  Sender: FDA-Public Use
  Company Number: US-B.I. PHARMACEUTICALS,INC./RIDGEFIELD-2013-BI-26615BP

PATIENT
  Age: 82 Year
  Sex: Female
  Weight: 77 kg

DRUGS (10)
  1. PRADAXA [Suspect]
     Indication: ATRIAL FIBRILLATION
     Dosage: 300 MG
     Route: 048
     Dates: start: 20130813
  2. SPIRONOLACTONE [Concomitant]
     Indication: OEDEMA PERIPHERAL
     Dosage: 50 MG
     Route: 048
     Dates: start: 2003
  3. SPIRONOLACTONE [Concomitant]
     Indication: OEDEMA PERIPHERAL
  4. OCUVITE [Concomitant]
     Indication: ULCERATIVE KERATITIS
     Dosage: DOSE PER APPLICATION: 1 TABLET; DAILY DOSE: 2 TABLETS
     Route: 048
     Dates: start: 201307
  5. FUROSEMIDE [Concomitant]
     Indication: OEDEMA PERIPHERAL
     Dosage: 40 MG
     Route: 048
     Dates: start: 2003
  6. FUROSEMIDE [Concomitant]
     Indication: OEDEMA PERIPHERAL
  7. PANTOPRAZOLE [Concomitant]
     Indication: GASTROOESOPHAGEAL REFLUX DISEASE
     Dosage: 40 MG
     Route: 048
     Dates: start: 2003
  8. NAPROSYN [Concomitant]
     Indication: ARTHRITIS
     Route: 048
     Dates: start: 2012
  9. ULORIC [Concomitant]
     Indication: GOUT
     Dosage: 40 MG
     Route: 048
     Dates: start: 2003
  10. CORTISONE [Concomitant]
     Indication: ARTHRITIS
     Dosage: FORMULATION: INTRAMUSCULAR
     Route: 030
     Dates: start: 2003

REACTIONS (11)
  - Vision blurred [Not Recovered/Not Resolved]
  - Eye infection [Not Recovered/Not Resolved]
  - Eye pain [Not Recovered/Not Resolved]
  - Aphasia [Recovered/Resolved]
  - Nervous system disorder [Unknown]
  - Contusion [Not Recovered/Not Resolved]
  - Yellow skin [Not Recovered/Not Resolved]
  - Urinary tract infection [Not Recovered/Not Resolved]
  - Contusion [Not Recovered/Not Resolved]
  - Headache [Unknown]
  - Contusion [Unknown]
